FAERS Safety Report 6587686-0 (Version None)
Quarter: 2010Q1

REPORT INFORMATION
  Report Type: 
  Country: None (occurrence: None)
  Receive Date: 20100218
  Receipt Date: 20100205
  Transmission Date: 20100710
  Serious: Yes (Hospitalization)
  Sender: FDA-Public Use
  Company Number: FR-MEDIMMUNE-MEDI-0010177

PATIENT
  Sex: Male
  Weight: 7 kg

DRUGS (1)
  1. SYNAGIS [Suspect]
     Route: 030
     Dates: start: 20091002

REACTIONS (4)
  - BRONCHIOLITIS [None]
  - BRONCHITIS [None]
  - DYSPNOEA [None]
  - WHEEZING [None]
